FAERS Safety Report 5474803-9 (Version None)
Quarter: 2007Q4

REPORT INFORMATION
  Report Type: 
  Country: None (occurrence: None)
  Receive Date: 20071002
  Receipt Date: 20070921
  Transmission Date: 20080405
  Serious: Yes (Life-Threatening, Hospitalization)
  Sender: FDA-Public Use
  Company Number: B0489310A

PATIENT
  Age: 49 Year
  Sex: Female

DRUGS (11)
  1. AUGMENTIN '125' [Suspect]
     Dosage: 1G THREE TIMES PER DAY
     Route: 042
     Dates: start: 20070430, end: 20070505
  2. VEPESID [Suspect]
     Route: 042
     Dates: start: 20070504, end: 20070504
  3. ZOFRAN [Concomitant]
     Route: 065
     Dates: start: 20070504
  4. CISPLATIN [Concomitant]
     Route: 065
     Dates: start: 20070504
  5. MANNITOL 10% [Concomitant]
     Route: 065
     Dates: start: 20070504, end: 20070504
  6. OMEPRAZOLE [Concomitant]
     Route: 065
     Dates: start: 20070425
  7. ATARAX [Concomitant]
     Route: 065
     Dates: start: 20070426
  8. SOLU-MEDROL [Concomitant]
     Route: 065
     Dates: start: 20070504
  9. VP16 [Concomitant]
     Route: 065
     Dates: start: 20070504, end: 20070504
  10. EPREX [Concomitant]
     Route: 065
     Dates: start: 20070505
  11. TRAMADOL HCL [Concomitant]
     Route: 065

REACTIONS (1)
  - ACUTE RESPIRATORY DISTRESS SYNDROME [None]
